FAERS Safety Report 25164983 (Version 1)
Quarter: 2025Q2

REPORT INFORMATION
  Report Type: Spontaneous
  Country: US (occurrence: US)
  Receive Date: 20250406
  Receipt Date: 20250406
  Transmission Date: 20250717
  Serious: Yes (Other)
  Sender: BRISTOL MYERS SQUIBB
  Company Number: US-BRISTOL-MYERS SQUIBB COMPANY-2025-046879

PATIENT
  Age: 87 Year
  Sex: Male
  Weight: 68.04 kg

DRUGS (1)
  1. POMALYST [Suspect]
     Active Substance: POMALIDOMIDE
     Indication: Plasma cell myeloma
     Dosage: DAILY FOR 3 WEEKS ON, THEN 1 OFF
     Route: 048

REACTIONS (2)
  - Full blood count decreased [Unknown]
  - Myelodysplastic syndrome [Unknown]
